FAERS Safety Report 5699245-2 (Version None)
Quarter: 2008Q2

REPORT INFORMATION
  Report Type: 
  Country: None (occurrence: None)
  Receive Date: 20080407
  Receipt Date: 20080407
  Transmission Date: 20081010
  Serious: Yes (Other)
  Sender: FDA-Public Use
  Company Number: None

PATIENT
  Age: 75 Year
  Sex: Male
  Weight: 95.2554 kg

DRUGS (2)
  1. SIMVASTATIN [Suspect]
     Indication: BLOOD CHOLESTEROL INCREASED
     Dosage: ONETABLET DAILY PO
     Route: 048
     Dates: start: 20060701, end: 20080325
  2. SIMVASTATIN [Suspect]
     Dosage: ONE TABLET DAILY PO
     Route: 048
     Dates: start: 20060701, end: 20080325

REACTIONS (8)
  - ASTHENIA [None]
  - DEPRESSION [None]
  - DRUG DEPENDENCE [None]
  - FATIGUE [None]
  - INSOMNIA [None]
  - MUSCULOSKELETAL PAIN [None]
  - PHARMACEUTICAL PRODUCT COMPLAINT [None]
  - SUICIDAL IDEATION [None]
